FAERS Safety Report 15051040 (Version 1)
Quarter: 2018Q2

REPORT INFORMATION
  Report Type: Spontaneous
  Country: US (occurrence: US)
  Receive Date: 20180622
  Receipt Date: 20180622
  Transmission Date: 20180711
  Serious: Yes (Life-Threatening, Other)
  Sender: FDA-Public Use
  Company Number: US-009507513-1806USA005510

PATIENT
  Age: 60 Year
  Sex: Female
  Weight: 88 kg

DRUGS (1)
  1. BRIDION [Suspect]
     Active Substance: SUGAMMADEX
     Dosage: 200 MG, UNK

REACTIONS (2)
  - Cardiac arrest [Recovered/Resolved]
  - Bradycardia [Recovered/Resolved]
